FAERS Safety Report 15939843 (Version 4)
Quarter: 2019Q2

REPORT INFORMATION
  Report Type: Spontaneous
  Country: US (occurrence: US)
  Receive Date: 20190208
  Receipt Date: 20190430
  Transmission Date: 20190711
  Serious: Yes (Other)
  Sender: FDA-Public Use
  Company Number: US-ASTRAZENECA-2018SF22119

PATIENT
  Age: 24133 Day
  Sex: Female
  Weight: 78 kg

DRUGS (48)
  1. NEXIUM 24HR [Suspect]
     Active Substance: ESOMEPRAZOLE MAGNESIUM
     Route: 048
     Dates: start: 200703, end: 201406
  2. PRILOSEC [Suspect]
     Active Substance: OMEPRAZOLE MAGNESIUM
     Route: 048
  3. AMOXICILLIN. [Concomitant]
     Active Substance: AMOXICILLIN
  4. GABAPENTIN. [Concomitant]
     Active Substance: GABAPENTIN
  5. PROMETHAZINE [Concomitant]
     Active Substance: PROMETHAZINE\PROMETHAZINE HYDROCHLORIDE
  6. LETROZOLE. [Concomitant]
     Active Substance: LETROZOLE
  7. ALENDRONATE [Concomitant]
     Active Substance: ALENDRONATE SODIUM
  8. FERROUS SULFATE. [Concomitant]
     Active Substance: FERROUS SULFATE
     Route: 065
  9. PENICILLIN VK [Concomitant]
     Active Substance: PENICILLIN V POTASSIUM
  10. NEXIUM [Suspect]
     Active Substance: ESOMEPRAZOLE MAGNESIUM
     Route: 048
     Dates: start: 20130304
  11. LANTUS [Concomitant]
     Active Substance: INSULIN GLARGINE
  12. AMIODARONE [Concomitant]
     Active Substance: AMIODARONE
  13. MIRTAZAPINE. [Concomitant]
     Active Substance: MIRTAZAPINE
  14. HUMULIN NOS [Concomitant]
     Active Substance: INSULIN HUMAN
  15. METOLAZONE. [Concomitant]
     Active Substance: METOLAZONE
  16. ISOSORBIDE DINITRATE. [Concomitant]
     Active Substance: ISOSORBIDE DINITRATE
  17. KLOR-CON [Concomitant]
     Active Substance: POTASSIUM CHLORIDE
  18. WARFARIN [Concomitant]
     Active Substance: WARFARIN
  19. CEPHALEXIN. [Concomitant]
     Active Substance: CEPHALEXIN
  20. BUTRANS [Concomitant]
     Active Substance: BUPRENORPHINE
  21. PANTOPRAZOLE SODIUM. [Concomitant]
     Active Substance: PANTOPRAZOLE SODIUM
  22. METOPROLOL SUCCINATE. [Concomitant]
     Active Substance: METOPROLOL SUCCINATE
  23. VICODIN [Concomitant]
     Active Substance: ACETAMINOPHEN\HYDROCODONE BITARTRATE
  24. FLUCONAZOLE. [Concomitant]
     Active Substance: FLUCONAZOLE
  25. MOTRIN [Concomitant]
     Active Substance: IBUPROFEN
     Route: 065
  26. ASPIRIN. [Concomitant]
     Active Substance: ASPIRIN
     Route: 065
  27. NEXIUM [Suspect]
     Active Substance: ESOMEPRAZOLE MAGNESIUM
     Route: 048
     Dates: start: 200703, end: 201406
  28. PRILOSEC OTC [Suspect]
     Active Substance: OMEPRAZOLE MAGNESIUM
     Route: 048
  29. CYCLOBENZAPRINE. [Concomitant]
     Active Substance: CYCLOBENZAPRINE
  30. BUSPIRONE [Concomitant]
     Active Substance: BUSPIRONE HYDROCHLORIDE
  31. COREG [Concomitant]
     Active Substance: CARVEDILOL
  32. FUROSEMIDE. [Concomitant]
     Active Substance: FUROSEMIDE
  33. IVABRADINE [Concomitant]
     Active Substance: IVABRADINE
  34. PNEUMOVAX 23 [Concomitant]
     Active Substance: PNEUMOCOCCAL VACCINE, POLYVALENT 23
  35. COLCRYS [Concomitant]
     Active Substance: COLCHICINE
  36. NEXIUM [Suspect]
     Active Substance: ESOMEPRAZOLE MAGNESIUM
     Route: 048
     Dates: start: 20050101, end: 20161231
  37. HUMALOG [Concomitant]
     Active Substance: INSULIN LISPRO
  38. METOCLOPRAMIDE. [Concomitant]
     Active Substance: METOCLOPRAMIDE
  39. DIGOXIN. [Concomitant]
     Active Substance: DIGOXIN
  40. PROPO-N/APAP [Concomitant]
  41. ATORVASTATIN [Concomitant]
     Active Substance: ATORVASTATIN
  42. ATORVASTATIN [Concomitant]
     Active Substance: ATORVASTATIN
     Route: 065
  43. PREVACID [Suspect]
     Active Substance: LANSOPRAZOLE
     Route: 065
  44. PREVACID 24 HR [Suspect]
     Active Substance: LANSOPRAZOLE
     Route: 065
  45. ALLOPURINOL. [Concomitant]
     Active Substance: ALLOPURINOL
  46. HYDRALAZINE [Concomitant]
     Active Substance: HYDRALAZINE HYDROCHLORIDE
  47. ALPRAZOLAM. [Concomitant]
     Active Substance: ALPRAZOLAM
  48. MILRINONE [Concomitant]
     Active Substance: MILRINONE

REACTIONS (5)
  - Acute kidney injury [Unknown]
  - Renal failure [Unknown]
  - Renal tubular necrosis [Unknown]
  - Renal injury [Unknown]
  - Chronic kidney disease [Unknown]

NARRATIVE: CASE EVENT DATE: 20160908
